FAERS Safety Report 5488063-6 (Version None)
Quarter: 2007Q4

REPORT INFORMATION
  Report Type: 
  Country: None (occurrence: None)
  Receive Date: 20071017
  Receipt Date: 20071009
  Transmission Date: 20080405
  Serious: Yes (Hospitalization)
  Sender: FDA-Public Use
  Company Number: FR-AVENTIS-200713222FR

PATIENT
  Age: 98 Year
  Sex: Male

DRUGS (5)
  1. LASILIX RETARD [Suspect]
     Route: 048
     Dates: end: 20060301
  2. ESIDRIX [Suspect]
     Route: 048
     Dates: end: 20060301
  3. COVERSYL                           /00790701/ [Suspect]
     Route: 048
     Dates: end: 20060301
  4. HEMIGOXINE [Suspect]
     Route: 048
     Dates: end: 20060301
  5. KARDEGIC                           /00002703/ [Concomitant]
     Route: 048

REACTIONS (6)
  - CARDIOACTIVE DRUG LEVEL INCREASED [None]
  - FALL [None]
  - HYPOTENSION [None]
  - MALAISE [None]
  - RENAL FAILURE [None]
  - RHABDOMYOLYSIS [None]
